FAERS Safety Report 6177709-5 (Version None)
Quarter: 2009Q2

REPORT INFORMATION
  Report Type: 
  Country: None (occurrence: None)
  Receive Date: 20090504
  Receipt Date: 20090427
  Transmission Date: 20091009
  Serious: Yes (Life-Threatening, Other)
  Sender: FDA-Public Use
  Company Number: US-RANBAXY-2009US-23677

PATIENT

DRUGS (2)
  1. AMOXICILLIN AND CLAVULANATE POTASSIUM [Suspect]
     Indication: WOUND INFECTION
     Dosage: 625 MG, UNK
     Route: 048
     Dates: start: 20061001, end: 20061001
  2. DOXYCYCLINE HYCLATE [Suspect]
     Indication: WOUND INFECTION
     Dosage: 100 MG, QD
     Route: 048
     Dates: start: 20061001, end: 20061001

REACTIONS (30)
  - ABDOMINAL DISCOMFORT [None]
  - ABDOMINAL PAIN UPPER [None]
  - ANAL FISSURE [None]
  - ANAL HAEMORRHAGE [None]
  - ANORECTAL DISCOMFORT [None]
  - BEDRIDDEN [None]
  - BOWEL MOVEMENT IRREGULARITY [None]
  - CLOSTRIDIAL INFECTION [None]
  - COLITIS [None]
  - CROHN'S DISEASE [None]
  - DEPRESSED MOOD [None]
  - DIARRHOEA [None]
  - EYE INFLAMMATION [None]
  - FREQUENT BOWEL MOVEMENTS [None]
  - GASTROINTESTINAL PAIN [None]
  - GASTROINTESTINAL ULCER [None]
  - HAEMORRHOIDS [None]
  - IMMUNE SYSTEM DISORDER [None]
  - LETHARGY [None]
  - MALAISE [None]
  - MOUTH ULCERATION [None]
  - ONYCHOMYCOSIS [None]
  - ORAL FUNGAL INFECTION [None]
  - PAINFUL DEFAECATION [None]
  - PROCTALGIA [None]
  - PSEUDOMEMBRANOUS COLITIS [None]
  - PSORIASIS [None]
  - RASH [None]
  - SEXUAL DYSFUNCTION [None]
  - WEIGHT DECREASED [None]
